FAERS Safety Report 14973273 (Version 6)
Quarter: 2019Q1

REPORT INFORMATION
  Report Type: Report from Study
  Country: CA (occurrence: CA)
  Receive Date: 20180605
  Receipt Date: 20190328
  Transmission Date: 20190417
  Serious: Yes (Other)
  Sender: FDA-Public Use
  Company Number: CA-ROCHE-2111534

PATIENT
  Age: 31 Year
  Sex: Female

DRUGS (11)
  1. CRESTOR [Concomitant]
     Active Substance: ROSUVASTATIN CALCIUM
     Indication: HEPATIC STEATOSIS
     Route: 065
     Dates: start: 201602
  2. ALDACTONE [Concomitant]
     Active Substance: SPIRONOLACTONE
     Route: 065
     Dates: start: 2014
  3. CITALOPRAM [Concomitant]
     Active Substance: CITALOPRAM HYDROBROMIDE
     Indication: DEPRESSION
     Route: 048
     Dates: start: 201602
  4. ELAVIL [Concomitant]
     Active Substance: AMITRIPTYLINE HYDROCHLORIDE
     Indication: PAIN
     Route: 065
     Dates: start: 201602
  5. LAMICTAL [Concomitant]
     Active Substance: LAMOTRIGINE
     Indication: NEURALGIA
     Route: 065
     Dates: start: 201702
  6. CYCLEN [Concomitant]
     Active Substance: ETHINYL ESTRADIOL\NORGESTIMATE
     Route: 065
     Dates: start: 2013
  7. VALTREX [Concomitant]
     Active Substance: VALACYCLOVIR HYDROCHLORIDE
     Dosage: 4 TABLETS EVERY 12 HOURS AND CONTINUES ONCE DAILY AFTER, FOR COLD SORES ATTACK
     Route: 065
     Dates: start: 201602
  8. ATIVAN [Concomitant]
     Active Substance: LORAZEPAM
     Route: 060
  9. OCREVUS [Suspect]
     Active Substance: OCRELIZUMAB
     Indication: RELAPSING-REMITTING MULTIPLE SCLEROSIS
     Dosage: 300MG DAY 0 AND DAY 14, THEN 600MG Q 6 MONTHS ;ONGOING: YES
     Route: 042
     Dates: start: 20180411
  10. METFORMIN [Concomitant]
     Active Substance: METFORMIN HYDROCHLORIDE
     Indication: POLYCYSTIC OVARIES
     Route: 065
     Dates: start: 2014
  11. PANTOPRAZOL [Concomitant]
     Active Substance: PANTOPRAZOLE SODIUM
     Route: 065

REACTIONS (19)
  - Rhinorrhoea [Not Recovered/Not Resolved]
  - Feeling hot [Not Recovered/Not Resolved]
  - Throat irritation [Not Recovered/Not Resolved]
  - Depressed mood [Not Recovered/Not Resolved]
  - Oral herpes [Not Recovered/Not Resolved]
  - Fatigue [Recovered/Resolved]
  - Pneumonia [Unknown]
  - Fatigue [Not Recovered/Not Resolved]
  - Tachycardia [Recovered/Resolved]
  - Back pain [Unknown]
  - Thyroid disorder [Unknown]
  - Oropharyngeal pain [Not Recovered/Not Resolved]
  - Nightmare [Not Recovered/Not Resolved]
  - Bronchitis [Unknown]
  - Nasal discomfort [Not Recovered/Not Resolved]
  - Cough [Not Recovered/Not Resolved]
  - Night sweats [Not Recovered/Not Resolved]
  - Morose [Not Recovered/Not Resolved]
  - Menorrhagia [Not Recovered/Not Resolved]

NARRATIVE: CASE EVENT DATE: 20180411
